APPROVED DRUG PRODUCT: OXACILLIN SODIUM
Active Ingredient: OXACILLIN SODIUM
Strength: EQ 1GM BASE/VIAL
Dosage Form/Route: INJECTABLE;INJECTION
Application: A062711 | Product #003
Applicant: ELKINS SINN DIV AH ROBINS CO INC
Approved: Feb 3, 1989 | RLD: No | RS: No | Type: DISCN